FAERS Safety Report 7177793-6 (Version None)
Quarter: 2010Q4

REPORT INFORMATION
  Report Type: 
  Country: None (occurrence: None)
  Receive Date: 20101220
  Receipt Date: 20101206
  Transmission Date: 20110411
  Serious: Yes (Other)
  Sender: FDA-Public Use
  Company Number: US-SANOFI-AVENTIS-2010SA010929

PATIENT
  Sex: Female

DRUGS (3)
  1. OPTICLICK [Suspect]
  2. LANTUS [Suspect]
     Route: 058
  3. INSULIN LISPRO [Suspect]
     Route: 065

REACTIONS (2)
  - COMA [None]
  - WRONG DRUG ADMINISTERED [None]
